FAERS Safety Report 8713653 (Version 3)
Quarter: 2012Q4

REPORT INFORMATION
  Report Type: Report from Study
  Country: US (occurrence: None)
  Receive Date: 20120724
  Receipt Date: 20120912
  Transmission Date: 20130627
  Serious: Yes (Death, Hospitalization)
  Sender: FDA-Public Use
  Company Number: US-JNJFOC-20120708265

PATIENT
  Age: 74 Year
  Sex: Male
  Weight: 66 kg

DRUGS (8)
  1. DECITABINE [Suspect]
     Indication: ACUTE MYELOID LEUKAEMIA
     Dosage: 20 MG/M2, INTRAVENOUS; 20 MG/M2, INTRAVENOUS
     Route: 042
     Dates: start: 20120514, end: 20120523
  2. DECITABINE [Suspect]
     Indication: ACUTE MYELOID LEUKAEMIA
     Dosage: 20 MG/M2, INTRAVENOUS; 20 MG/M2, INTRAVENOUS
     Route: 042
     Dates: start: 20120611, end: 20120620
  3. ACYCLOVIR [Concomitant]
  4. CIPROFLOXACIN [Concomitant]
  5. DIGOXIN [Concomitant]
  6. FINASTERIDE (FINASERIDE) [Concomitant]
  7. LISINOPRIL [Concomitant]
  8. TAMSULOSIN HYDROCHLORIDE [Concomitant]

REACTIONS (7)
  - FUNGAEMIA [None]
  - DECREASED APPETITE [None]
  - MALAISE [None]
  - ASTHENIA [None]
  - FATIGUE [None]
  - RESPIRATORY DISTRESS [None]
  - HYPOTENSION [None]
